FAERS Safety Report 15506668 (Version 1)
Quarter: 2018Q4

REPORT INFORMATION
  Report Type: Spontaneous
  Country: US (occurrence: US)
  Receive Date: 20181016
  Receipt Date: 20181016
  Transmission Date: 20190205
  Serious: Yes (Other)
  Sender: FDA-Public Use
  Company Number: US-PENTEC HEALTH-2018PEN00054

PATIENT

DRUGS (1)
  1. VANCOMYCIN HYDROCHLORIDE. [Suspect]
     Active Substance: VANCOMYCIN HYDROCHLORIDE
     Dosage: UNK, INTRACAMERAL IRRIGATION DURING CATARACT SURGERY
     Route: 031
     Dates: start: 2013, end: 2013

REACTIONS (1)
  - Retinal vasculitis [Recovered/Resolved]

NARRATIVE: CASE EVENT DATE: 2013
